FAERS Safety Report 8156216-4 (Version None)
Quarter: 2012Q1

REPORT INFORMATION
  Report Type: 
  Country: None (occurrence: None)
  Receive Date: 20120216
  Receipt Date: 20120209
  Transmission Date: 20120608
  Serious: Yes (Hospitalization)
  Sender: FDA-Public Use
  Company Number: GER/UKI/12/0022804

PATIENT
  Age: 85 Year
  Sex: Female
  Weight: 69 kg

DRUGS (12)
  1. ASPIRIN [Concomitant]
  2. ENOXAPARIN SODIUM [Concomitant]
  3. PROCHLORPERAZINE MALEATE [Concomitant]
  4. ALENDRONIC ACID (ALENDRONIC ACID) [Suspect]
     Indication: OSTEOPOROSIS
     Dosage: 70 MG, 1 IN 1 WK, ORAL
     Route: 048
     Dates: start: 20120101
  5. CARBOCISTEINE (CARBOCISTEINE) [Concomitant]
  6. SERETIDE (SERETIDE) [Concomitant]
  7. ALBUTEROL SULFATE [Concomitant]
  8. LEVOTHYROXINE SODIUM [Concomitant]
  9. TIOTROPIUM BROMIDE (TIOTROPIUM BROMIDE) [Concomitant]
  10. ADCAL-D3 (LEKOVIT CA) [Concomitant]
  11. DIPYRIDAMOLE [Concomitant]
  12. PREDNISOLONE [Concomitant]

REACTIONS (3)
  - OESOPHAGEAL ULCER HAEMORRHAGE [None]
  - PELVIC FRACTURE [None]
  - FALL [None]
